FAERS Safety Report 6446778-7 (Version None)
Quarter: 2009Q4

REPORT INFORMATION
  Report Type: 
  Country: None (occurrence: None)
  Receive Date: 20091119
  Receipt Date: 20091106
  Transmission Date: 20100525
  Serious: Yes (Other)
  Sender: FDA-Public Use
  Company Number: PHHY2008CA16031

PATIENT
  Sex: Female

DRUGS (2)
  1. ACLASTA [Suspect]
     Indication: OSTEOPOROSIS
     Dosage: 5 MG, UNK
     Dates: start: 20080724
  2. ACLASTA [Suspect]
     Dosage: UNK
     Dates: start: 20090826

REACTIONS (13)
  - ABDOMINAL DISCOMFORT [None]
  - ARTHRALGIA [None]
  - BACK PAIN [None]
  - BONE PAIN [None]
  - BREAST TENDERNESS [None]
  - DIZZINESS [None]
  - GINGIVAL DISORDER [None]
  - GINGIVAL INFECTION [None]
  - HEADACHE [None]
  - MYALGIA [None]
  - PAIN [None]
  - TOOTH ABSCESS [None]
  - VISUAL IMPAIRMENT [None]
